FAERS Safety Report 7916821-4 (Version None)
Quarter: 2011Q4

REPORT INFORMATION
  Report Type: 
  Country: None (occurrence: None)
  Receive Date: 20111116
  Receipt Date: 20111114
  Transmission Date: 20120403
  Serious: Yes (Hospitalization)
  Sender: FDA-Public Use
  Company Number: FR-EISAI INC-E2080-00288-SPO-FR

PATIENT
  Sex: Female
  Weight: 40 kg

DRUGS (6)
  1. INOVELON [Suspect]
     Dosage: 200 MG DAILY FOR ONE WEEK
     Route: 048
     Dates: start: 20100401, end: 20100401
  2. VALPROATE SODIUM [Concomitant]
     Indication: ENCEPHALOPATHY
     Dosage: 1 G
     Route: 048
  3. INOVELON [Suspect]
     Indication: ENCEPHALOPATHY
     Dosage: 100 MG DAILY FOR ONE WEEK
     Route: 048
     Dates: start: 20100325, end: 20100401
  4. INOVELON [Suspect]
     Dosage: 300 MG DAILY FOR ONE WEEK
     Route: 048
     Dates: start: 20100401, end: 20100413
  5. TOPIRAMATE [Concomitant]
     Indication: ENCEPHALOPATHY
     Dosage: 75 MG
     Route: 048
  6. CLOBAZAN [Concomitant]
     Dosage: 10 MG
     Route: 048

REACTIONS (3)
  - LYMPHOCYTOSIS [None]
  - THROMBOCYTOPENIA [None]
  - HYPERSENSITIVITY [None]
